FAERS Safety Report 5304309-9 (Version None)
Quarter: 2007Q2

REPORT INFORMATION
  Report Type: 
  Country: None (occurrence: None)
  Receive Date: 20070423
  Receipt Date: 20070411
  Transmission Date: 20071010
  Serious: Yes (Hospitalization)
  Sender: FDA-Public Use
  Company Number: PHEH2007US04952

PATIENT
  Age: 78 Year
  Sex: Female

DRUGS (15)
  1. ZELNORM [Suspect]
     Indication: IRRITABLE BOWEL SYNDROME
     Dosage: 6 MG, BID
     Route: 048
     Dates: end: 20070331
  2. NEURONTIN [Concomitant]
  3. ISOSORBIDE [Concomitant]
  4. CLOPIDOGREL BISULFATE [Concomitant]
  5. FUROSEMIDE [Concomitant]
  6. AMLODIPINE BESYLATE [Concomitant]
  7. DARVOCET-N 100 [Concomitant]
  8. NEXIUM [Concomitant]
  9. SYNTHROID [Concomitant]
  10. SINGULAIR [Concomitant]
  11. SIMVASTATIN [Concomitant]
  12. ALLOPURINOL [Concomitant]
  13. VERAPAMIL [Concomitant]
  14. INSULIN [Concomitant]
  15. ASPIRIN [Concomitant]
     Dosage: 81 MG, UNK

REACTIONS (5)
  - ANAEMIA [None]
  - BRONCHITIS [None]
  - CARDIAC FAILURE CONGESTIVE [None]
  - DYSPNOEA [None]
  - HAEMOGLOBIN DECREASED [None]
